FAERS Safety Report 9342714 (Version 1)
Quarter: 2013Q2

REPORT INFORMATION
  Report Type: Spontaneous
  Country: US (occurrence: US)
  Receive Date: 20130611
  Receipt Date: 20130611
  Transmission Date: 20140414
  Serious: No
  Sender: FDA-Public Use
  Company Number: US-BAYER-2013-068045

PATIENT
  Age: 81 Year
  Sex: Male

DRUGS (3)
  1. LEVITRA [Suspect]
     Indication: ERECTILE DYSFUNCTION
     Dosage: 20 MG, ONCE
     Route: 048
     Dates: start: 20130530
  2. VITAMINS [Concomitant]
  3. PRAVASTATIN [Concomitant]

REACTIONS (2)
  - Drug ineffective [None]
  - Erectile dysfunction [None]
